FAERS Safety Report 21564695 (Version 4)
Quarter: 2024Q1

REPORT INFORMATION
  Report Type: Other
  Country: DE (occurrence: None)
  Receive Date: 20221108
  Receipt Date: 20240328
  Transmission Date: 20240410
  Serious: No
  Sender: FDA-Public Use
  Company Number: DE-ROCHE-3021859

PATIENT
  Age: 56 Year
  Sex: Female

DRUGS (5)
  1. OCREVUS [Suspect]
     Active Substance: OCRELIZUMAB
     Indication: Relapsing-remitting multiple sclerosis
     Route: 042
     Dates: start: 20220120
  2. OCREVUS [Suspect]
     Active Substance: OCRELIZUMAB
     Dosage: SUBSEQUENT DOSAGE ON 25/AUG/2022
     Route: 042
     Dates: start: 20220120
  3. OCREVUS [Suspect]
     Active Substance: OCRELIZUMAB
     Route: 042
     Dates: start: 20240326
  4. ZINC [Concomitant]
     Active Substance: PYRITHIONE ZINC\ZINC\ZINC CHLORIDE
  5. IBUPROFEN [Concomitant]
     Active Substance: IBUPROFEN

REACTIONS (4)
  - Pain in extremity [Recovered/Resolved]
  - Headache [Recovered/Resolved]
  - COVID-19 [Recovered/Resolved]
  - Fatigue [Recovered/Resolved]

NARRATIVE: CASE EVENT DATE: 20220206
